FAERS Safety Report 5719022-3 (Version None)
Quarter: 2008Q2

REPORT INFORMATION
  Report Type: 
  Country: None (occurrence: None)
  Receive Date: 20080425
  Receipt Date: 20080416
  Transmission Date: 20081010
  Serious: Yes (Hospitalization)
  Sender: FDA-Public Use
  Company Number: PHHY2008JP02338

PATIENT
  Age: 56 Year
  Sex: Male
  Weight: 96 kg

DRUGS (3)
  1. PLAVIX [Suspect]
     Dosage: 75 MG, UNK
     Route: 048
     Dates: start: 20071208, end: 20080110
  2. NORVASC [Suspect]
     Dosage: 10 MG, UNK
     Route: 048
     Dates: start: 20071211, end: 20080110
  3. DIOVAN [Suspect]
     Indication: HYPERTENSION
     Dosage: 80 MG, BID
     Route: 048
     Dates: start: 20071208, end: 20080110

REACTIONS (3)
  - CYANOSIS [None]
  - SLEEP APNOEA SYNDROME [None]
  - SYNCOPE [None]
